FAERS Safety Report 19783736 (Version 4)
Quarter: 2022Q1

REPORT INFORMATION
  Report Type: Report from Study
  Country: US (occurrence: US)
  Receive Date: 20210903
  Receipt Date: 20220118
  Transmission Date: 20220423
  Serious: No
  Sender: FDA-Public Use
  Company Number: NVSC2021US199834

PATIENT
  Age: 61 Year
  Sex: Female

DRUGS (3)
  1. KESIMPTA [Suspect]
     Active Substance: OFATUMUMAB
     Indication: Multiple sclerosis
     Dosage: 20 MG, QW (SUBCUTANEOUS- BENEATH THE SKIN, USUALLY VIA INJECTION)
     Route: 058
     Dates: start: 20210823
  2. KESIMPTA [Suspect]
     Active Substance: OFATUMUMAB
     Dosage: 20 MG, QMO (SUBCUTANEOUS- BENEATH THE SKIN USUALLY VIA INJECTION)
     Route: 058
     Dates: start: 20210825
  3. KESIMPTA [Suspect]
     Active Substance: OFATUMUMAB
     Dosage: 20 MG, QMO (BENEATH THE SKIN, USUALLY VIA INJECTION)
     Route: 058
     Dates: start: 20210825, end: 20211124

REACTIONS (6)
  - Influenza like illness [Recovered/Resolved]
  - Sinusitis [Not Recovered/Not Resolved]
  - Coronavirus infection [Not Recovered/Not Resolved]
  - Fatigue [Not Recovered/Not Resolved]
  - Product distribution issue [Unknown]
  - Therapeutic product effect decreased [Unknown]

NARRATIVE: CASE EVENT DATE: 20210823
